FAERS Safety Report 6763780-6 (Version None)
Quarter: 2010Q2

REPORT INFORMATION
  Report Type: 
  Country: None (occurrence: None)
  Receive Date: 20100610
  Receipt Date: 20100503
  Transmission Date: 20101027
  Serious: Yes (Other)
  Sender: FDA-Public Use
  Company Number: NL-ASTRAZENECA-2010SE22548

PATIENT
  Sex: Male

DRUGS (6)
  1. SEROQUEL [Suspect]
     Indication: DEPRESSION
     Route: 048
  2. SAROTEX [Suspect]
     Indication: DEPRESSION
  3. LEXAPRO [Suspect]
     Indication: DEPRESSION
  4. TRAZOLAN [Suspect]
     Indication: DEPRESSION
  5. PROTHIADEN [Suspect]
     Indication: DEPRESSION
  6. OXAZEPAM [Suspect]
     Indication: DEPRESSION

REACTIONS (6)
  - APATHY [None]
  - HOMICIDAL IDEATION [None]
  - LIBIDO DECREASED [None]
  - SUICIDAL IDEATION [None]
  - TOOTH DISORDER [None]
  - WEIGHT INCREASED [None]
